FAERS Safety Report 24190429 (Version 4)
Quarter: 2025Q3

REPORT INFORMATION
  Report Type: Spontaneous
  Country: US (occurrence: US)
  Receive Date: 20240808
  Receipt Date: 20250917
  Transmission Date: 20251021
  Serious: No
  Sender: VERTEX
  Company Number: US-VERTEX PHARMACEUTICALS-2024-012644

PATIENT

DRUGS (2)
  1. TRIKAFTA [Suspect]
     Active Substance: ELEXACAFTOR\IVACAFTOR\TEZACAFTOR
     Indication: Cystic fibrosis
     Route: 048
  2. CHOLESTYRAMINE [Concomitant]
     Active Substance: CHOLESTYRAMINE

REACTIONS (7)
  - Feeling abnormal [Unknown]
  - Tinnitus [Unknown]
  - Neuralgia [Unknown]
  - Brain fog [Unknown]
  - Sleep disorder [Unknown]
  - Blood alkaline phosphatase increased [Not Recovered/Not Resolved]
  - Hepatic enzyme abnormal [Recovered/Resolved]
